FAERS Safety Report 7896153-3 (Version None)
Quarter: 2011Q4

REPORT INFORMATION
  Report Type: 
  Country: None (occurrence: None)
  Receive Date: 20111106
  Receipt Date: 20110906
  Transmission Date: 20120403
  Serious: No
  Sender: FDA-Public Use
  Company Number: US-AMGEN-USASP2011045597

PATIENT
  Age: 50 Year
  Sex: Female
  Weight: 61.224 kg

DRUGS (13)
  1. GALANTAMINE HYDROBROMIDE [Concomitant]
     Dosage: 12 MG, UNK
  2. MULTITABS [Concomitant]
     Dosage: UNK
  3. MELOXICAM [Concomitant]
     Dosage: 15 MG, UNK
  4. ENBREL [Suspect]
     Indication: PRODUCT USED FOR UNKNOWN INDICATION
     Dosage: 50 MG, QWK
     Route: 058
  5. ALTACE [Concomitant]
     Dosage: 0.25 MG, UNK
  6. METHOTREXATE [Concomitant]
     Dosage: 2.5 MG, UNK
  7. FOLIC ACID [Concomitant]
     Dosage: 1 MG, UNK
  8. FISH OIL [Concomitant]
     Dosage: UNK
  9. ASCORBIC ACID [Concomitant]
     Dosage: 500 MG, UNK
  10. TYLENOL-500 [Concomitant]
     Dosage: 500 MG, UNK
  11. TRIAMTERENE AND HYDROCHLOROTHIAZIDE [Concomitant]
     Dosage: UNK
  12. DILTIAZEM HCL [Concomitant]
     Dosage: 120 MG, UNK
  13. VITAMIN B-12 [Concomitant]
     Dosage: 500 MUG, UNK

REACTIONS (2)
  - HEADACHE [None]
  - PAIN IN EXTREMITY [None]
